FAERS Safety Report 8207746-8 (Version None)
Quarter: 2012Q1

REPORT INFORMATION
  Report Type: 
  Country: None (occurrence: None)
  Receive Date: 20120314
  Receipt Date: 20120229
  Transmission Date: 20120608
  Serious: Yes (Other)
  Sender: FDA-Public Use
  Company Number: FR-CELGENEUS-056-21880-11113532

PATIENT
  Sex: Female

DRUGS (1)
  1. REVLIMID [Suspect]
     Indication: POEMS SYNDROME
     Dosage: 25 MILLIGRAM
     Route: 048
     Dates: start: 20111117

REACTIONS (1)
  - VISUAL ACUITY REDUCED [None]
